FAERS Safety Report 7793213 (Version 5)
Quarter: 2012Q4

REPORT INFORMATION
  Report Type: 
  Country: US (occurrence: US)
  Receive Date: 20110131
  Receipt Date: 20121102
  Transmission Date: 20130627
  Serious: No
  Sender: FDA-Public Use
  Company Number: US-ASTRAZENECA-2011SE04076

PATIENT
  Age: 86 Year
  Sex: Female

DRUGS (8)
  1. NEXIUM [Suspect]
     Route: 048
  2. VICODIN [Concomitant]
     Dosage: 500MG 5MG 1/2 TABLET EVERY FOUR HOURS PRN LAST DOSE 100
  3. LIPITOR [Concomitant]
     Route: 048
  4. ZOLPIDEM [Concomitant]
     Route: 048
  5. DIGOXIN [Concomitant]
     Route: 048
  6. ASPIRIN [Concomitant]
     Route: 048
  7. NORVASC [Concomitant]
     Route: 048
  8. HCTZ [Concomitant]
     Route: 048

REACTIONS (10)
  - Nasopharyngitis [Unknown]
  - Hyperlipidaemia [Unknown]
  - Hypertension [Unknown]
  - Heart rate irregular [Unknown]
  - Peripheral vascular disorder [Unknown]
  - Coronary artery disease [Unknown]
  - Aortic aneurysm [Unknown]
  - Headache [Unknown]
  - Thrombocytopenia [Unknown]
  - Malaise [Unknown]
